FAERS Safety Report 5987633-6 (Version None)
Quarter: 2008Q4

REPORT INFORMATION
  Report Type: 
  Country: None (occurrence: None)
  Receive Date: 20081209
  Receipt Date: 20081123
  Transmission Date: 20090506
  Serious: No
  Sender: FDA-Public Use
  Company Number: US-B.I. PHARMACEUTICALS,INC./RIDGEFIELD-2008-BP-17744BP

PATIENT
  Sex: Female

DRUGS (3)
  1. ZANTAC 150 [Suspect]
     Indication: DYSPEPSIA
     Dosage: 150MG
     Route: 048
     Dates: start: 20081123
  2. XOPENEX [Concomitant]
     Indication: ASTHMA
     Route: 055
  3. QVAR 40 [Concomitant]
     Route: 055

REACTIONS (1)
  - DRUG INEFFECTIVE [None]
